FAERS Safety Report 10361223 (Version 2)
Quarter: 2014Q3

REPORT INFORMATION
  Report Type: Spontaneous
  Country: US (occurrence: None)
  Receive Date: 20140731
  Receipt Date: 20140819
  Transmission Date: 20150326
  Serious: Yes (Death)
  Sender: FDA-Public Use
  Company Number: 2014-US-009403

PATIENT
  Age: 59 Year
  Sex: Male

DRUGS (1)
  1. FAZACLO [Suspect]
     Active Substance: CLOZAPINE
     Route: 048
     Dates: start: 20071002, end: 201309

REACTIONS (3)
  - Neoplasm malignant [None]
  - Lung neoplasm malignant [None]
  - White blood cell count decreased [None]

NARRATIVE: CASE EVENT DATE: 201309
